FAERS Safety Report 4785042-9 (Version None)
Quarter: 2005Q3

REPORT INFORMATION
  Report Type: 
  Country: None (occurrence: None)
  Receive Date: 20050928
  Receipt Date: 20050919
  Transmission Date: 20060218
  Serious: Yes (Other)
  Sender: FDA-Public Use
  Company Number: 200513758BCC

PATIENT
  Age: 73 Year
  Sex: Male
  Weight: 117.9352 kg

DRUGS (5)
  1. ALEVE [Suspect]
     Indication: ARTHRITIS
     Dosage: TID, ORAL
     Route: 048
  2. LISINOPRIL [Concomitant]
  3. HYDROCHLOROTHIAZIDE [Concomitant]
  4. LIPITOR [Concomitant]
  5. LOW DOSE ASPIRIN [Concomitant]

REACTIONS (1)
  - BLOOD PRESSURE INCREASED [None]
